FAERS Safety Report 5982575-4 (Version None)
Quarter: 2008Q4

REPORT INFORMATION
  Report Type: 
  Country: None (occurrence: None)
  Receive Date: 20081208
  Receipt Date: 20081127
  Transmission Date: 20090506
  Serious: Yes (Other)
  Sender: FDA-Public Use
  Company Number: PHHY2008NO30047

PATIENT
  Sex: Female

DRUGS (1)
  1. EXELON [Suspect]
     Route: 062

REACTIONS (4)
  - COLOSTOMY [None]
  - ERYSIPELAS [None]
  - OEDEMA PERIPHERAL [None]
  - SKIN HAEMORRHAGE [None]
